FAERS Safety Report 8410741-7 (Version None)
Quarter: 2012Q2

REPORT INFORMATION
  Report Type: 
  Country: None (occurrence: None)
  Receive Date: 20120605
  Receipt Date: 20120524
  Transmission Date: 20120825
  Serious: Yes (Disabling)
  Sender: FDA-Public Use
  Company Number: US-NOVOPROD-351695

PATIENT
  Age: 10 Year
  Sex: Male
  Weight: 48.8 kg

DRUGS (2)
  1. IDEG PENFILL [Suspect]
     Indication: TYPE 1 DIABETES MELLITUS
     Dosage: 24 U, QD
     Route: 058
     Dates: start: 20120411
  2. NOVORAPID PENFILL 3.0 ML [Suspect]
     Indication: TYPE 1 DIABETES MELLITUS
     Dosage: 57 U, QD
     Route: 058
     Dates: start: 20071101

REACTIONS (1)
  - HEADACHE [None]
